FAERS Safety Report 17047347 (Version 1)
Quarter: 2019Q4

REPORT INFORMATION
  Report Type: Other
  Country: US (occurrence: US)
  Receive Date: 20191119
  Receipt Date: 20191119
  Transmission Date: 20200122
  Serious: Yes (Congenital Anomaly, Other)
  Sender: FDA-Public Use
  Company Number: US-MACLEODS PHARMACEUTICALS US LTD-MAC2019023747

PATIENT

DRUGS (3)
  1. ABACAVIR. [Suspect]
     Active Substance: ABACAVIR
     Indication: HIV INFECTION
     Dosage: UNK, UNK, 1 COURSE OF ABACAVIR DURING UNKNOWN TRIMESTER
     Route: 064
  2. TIVICAY [Suspect]
     Active Substance: DOLUTEGRAVIR SODIUM
     Indication: HIV INFECTION
     Dosage: UNK, 1 COURSE OF TIVICAY, DTG (DOLUTEGRAVIR) DURING UNKNOWN TRIMESTER
     Route: 064
  3. LAMIVUDINE. [Suspect]
     Active Substance: LAMIVUDINE
     Indication: HIV INFECTION
     Dosage: UNK, 1 COURSE OF LAMIVUDINE DURING UNKNOWN TRIMESTER
     Route: 064

REACTIONS (2)
  - Skin hyperpigmentation [Unknown]
  - Foetal exposure during pregnancy [Unknown]
